FAERS Safety Report 7667359-3 (Version None)
Quarter: 2011Q3

REPORT INFORMATION
  Report Type: 
  Country: None (occurrence: None)
  Receive Date: 20110806
  Receipt Date: 20110303
  Transmission Date: 20111222
  Serious: No
  Sender: FDA-Public Use
  Company Number: US-ABBOTT-11P-163-0708780-00

PATIENT
  Sex: Male
  Weight: 113.5 kg

DRUGS (3)
  1. CRESTOR [Concomitant]
     Indication: PRODUCT USED FOR UNKNOWN INDICATION
  2. NIASPAN [Suspect]
     Indication: PRODUCT USED FOR UNKNOWN INDICATION
     Dosage: EVERY NIGHT
     Dates: start: 20090301
  3. NIASPAN [Suspect]
     Dosage: EVERY NIGHT
     Dates: start: 20101001

REACTIONS (2)
  - DIARRHOEA [None]
  - ARTHRALGIA [None]
